FAERS Safety Report 19160358 (Version 1)
Quarter: 2021Q2

REPORT INFORMATION
  Report Type: Spontaneous
  Country: US (occurrence: US)
  Receive Date: 20210420
  Receipt Date: 20210420
  Transmission Date: 20210717
  Serious: No
  Sender: FDA-Public Use
  Company Number: US-TAKEDA-2021TUS023167

PATIENT
  Sex: Female
  Weight: 70 kg

DRUGS (1)
  1. PENTASA [Suspect]
     Active Substance: MESALAMINE
     Indication: CROHN^S DISEASE
     Dosage: 500 MILLIGRAM, BID
     Route: 065
     Dates: start: 1995

REACTIONS (2)
  - Incorrect dose administered [Unknown]
  - No adverse event [Unknown]
